FAERS Safety Report 6202748-5 (Version None)
Quarter: 2009Q2

REPORT INFORMATION
  Report Type: 
  Country: None (occurrence: None)
  Receive Date: 20090526
  Receipt Date: 20090518
  Transmission Date: 20091009
  Serious: Yes (Other)
  Sender: FDA-Public Use
  Company Number: PHEH2009US04940

PATIENT
  Age: 65 Year
  Sex: Female

DRUGS (1)
  1. RECLAST [Suspect]
     Dosage: UNK
     Dates: start: 20090513

REACTIONS (5)
  - BLADDER DISORDER [None]
  - BLOOD URINE PRESENT [None]
  - FATIGUE [None]
  - PAIN [None]
  - RENAL PAIN [None]
